FAERS Safety Report 18925721 (Version 3)
Quarter: 2021Q1

REPORT INFORMATION
  Report Type: Spontaneous
  Country: US (occurrence: US)
  Receive Date: 20210222
  Receipt Date: 20210326
  Transmission Date: 20210420
  Serious: Yes (Other)
  Sender: FDA-Public Use
  Company Number: US-AMGEN-USASP2021027962

PATIENT
  Age: 79 Year
  Sex: Female
  Weight: 85.7 kg

DRUGS (1)
  1. ENBREL [Suspect]
     Active Substance: ETANERCEPT
     Indication: RHEUMATOID ARTHRITIS
     Dosage: UNK
     Route: 065

REACTIONS (5)
  - Pulmonary granuloma [Not Recovered/Not Resolved]
  - Pulmonary fibrosis [Unknown]
  - Interstitial lung disease [Unknown]
  - Gastrointestinal disorder [Unknown]
  - Dyspnoea [Unknown]
